FAERS Safety Report 9543192 (Version 1)
Quarter: 2013Q3

REPORT INFORMATION
  Report Type: Spontaneous
  Country: US (occurrence: US)
  Receive Date: 20130923
  Receipt Date: 20130923
  Transmission Date: 20140515
  Serious: No
  Sender: FDA-Public Use
  Company Number: US-PURDUE-USA-2012-0093826

PATIENT
  Age: 20 Year
  Sex: Male

DRUGS (4)
  1. DILAUDID TABLET [Suspect]
     Indication: PAIN
     Dosage: 2 MG, UNK
     Route: 048
     Dates: start: 2012
  2. DILAUDID TABLET [Suspect]
     Dosage: 2 MG, PRN
     Route: 048
     Dates: start: 2012
  3. OXYCONTIN (NDA 22-272) [Suspect]
     Indication: PAIN
     Dosage: 15 MG, UNK
     Route: 048
  4. PERCOCET                           /00867901/ [Concomitant]
     Indication: PAIN
     Dosage: 1 TABLET, Q6H
     Route: 048
     Dates: start: 2012

REACTIONS (3)
  - Withdrawal syndrome [Unknown]
  - Inadequate analgesia [Unknown]
  - Intentional drug misuse [Unknown]
